FAERS Safety Report 9059492 (Version 1)
Quarter: 2013Q1

REPORT INFORMATION
  Report Type: Spontaneous
  Country: US (occurrence: US)
  Receive Date: 20130211
  Receipt Date: 20130211
  Transmission Date: 20140127
  Serious: Yes (Hospitalization)
  Sender: FDA-Public Use
  Company Number: US-MYLANLABS-2013S1002281

PATIENT
  Age: 18 Year
  Sex: Female

DRUGS (12)
  1. ESOMEPRAZOLE [Suspect]
     Indication: PROPHYLAXIS AGAINST GASTROINTESTINAL ULCER
     Dosage: 40 MG/DAY
     Route: 065
  2. OMEPRAZOLE [Interacting]
     Indication: PROPHYLAXIS AGAINST GASTROINTESTINAL ULCER
     Dosage: 40 MG/DAY
     Route: 065
  3. TACROLIMUS [Interacting]
     Indication: IMMUNOSUPPRESSANT DRUG THERAPY
     Dosage: 6 MG/DAY IN TWO DIVIDED DOSES
     Route: 065
  4. LANSOPRAZOLE [Concomitant]
     Indication: PROPHYLAXIS AGAINST GASTROINTESTINAL ULCER
     Dosage: 30 MG/DAY
     Route: 065
  5. MYCOPHENOLATE [Concomitant]
     Indication: IMMUNOSUPPRESSANT DRUG THERAPY
     Route: 065
  6. PREDNISONE [Concomitant]
     Route: 065
  7. COTRIMOXAZOLE [Concomitant]
     Route: 065
  8. VALGANCICLOVIR [Concomitant]
     Route: 065
  9. CARVEDILOL [Concomitant]
     Route: 065
  10. AZITHROMYCIN [Concomitant]
     Indication: SINUSITIS
     Route: 065
  11. CEFDINIR [Concomitant]
     Indication: SINUSITIS
     Route: 065
  12. CEFDINIR [Concomitant]
     Dosage: 21-DAY COURSE, PRESCRIBED PRIOR TO HOSPITALISATION
     Route: 065

REACTIONS (7)
  - Drug level increased [Recovered/Resolved]
  - Fatigue [Unknown]
  - Sinusitis [Unknown]
  - Nausea [Recovered/Resolved]
  - Vomiting [Recovered/Resolved]
  - Blood creatinine increased [Unknown]
  - Drug interaction [Unknown]
